FAERS Safety Report 25872893 (Version 1)
Quarter: 2025Q4

REPORT INFORMATION
  Report Type: Spontaneous
  Country: EU (occurrence: EU)
  Receive Date: 20251002
  Receipt Date: 20251002
  Transmission Date: 20260118
  Serious: Yes (Hospitalization, Other)
  Sender: CHEPLAPHARM
  Company Number: None

PATIENT
  Age: 53 Year
  Sex: Female

DRUGS (15)
  1. QUETIAPINE [Suspect]
     Active Substance: QUETIAPINE
     Indication: Anxiety
     Dosage: HALF TABLET TWICE A DAY FROM 25/JUL/2018
     Route: 048
     Dates: start: 20180725, end: 20180829
  2. QUETIAPINE [Suspect]
     Active Substance: QUETIAPINE
     Indication: Anxiety
     Dosage: INCREASED TO HALF TABLET FOUR TIMES DAILY
     Route: 048
     Dates: start: 20180829, end: 20180926
  3. OLANZAPINE [Suspect]
     Active Substance: OLANZAPINE
     Route: 048
     Dates: start: 20180926
  4. KETAMINE (G) [Concomitant]
     Dosage: INFUSION
     Route: 042
  5. LIDOCAINE HYDROCHLORIDE (G) [Concomitant]
     Dosage: INFUSION
     Route: 042
  6. CALCIUM CARBONATE [Concomitant]
     Active Substance: CALCIUM CARBONATE
     Route: 048
  7. CYMBALTA [Concomitant]
     Active Substance: DULOXETINE HYDROCHLORIDE
     Route: 048
  8. VALTREX [Concomitant]
     Active Substance: VALACYCLOVIR HYDROCHLORIDE
     Route: 048
  9. ZOLPIDEM TARTRATE [Concomitant]
     Active Substance: ZOLPIDEM TARTRATE
     Dosage: ONE AT NIGHT
     Route: 048
  10. LANSOPRAZOLE [Concomitant]
     Active Substance: LANSOPRAZOLE
     Route: 048
  11. PENTASA [Concomitant]
     Active Substance: MESALAMINE
     Route: 048
  12. ATORVASTATIN [Concomitant]
     Active Substance: ATORVASTATIN
     Dosage: AT NIGHT
     Route: 048
  13. VENTOLIN [Concomitant]
     Active Substance: ALBUTEROL SULFATE
     Route: 055
  14. FLUTICASONE FUROATE\VILANTEROL TRIFENATATE [Concomitant]
     Active Substance: FLUTICASONE FUROATE\VILANTEROL TRIFENATATE
     Route: 055
  15. VENLAFAXINE [Concomitant]
     Active Substance: VENLAFAXINE HYDROCHLORIDE
     Route: 048

REACTIONS (21)
  - Cerebral small vessel ischaemic disease [Unknown]
  - Dystonia [Not Recovered/Not Resolved]
  - Deafness neurosensory [Not Recovered/Not Resolved]
  - Facial paralysis [Not Recovered/Not Resolved]
  - Retinal detachment [Not Recovered/Not Resolved]
  - Intestinal obstruction [Not Recovered/Not Resolved]
  - Tongue injury [Not Recovered/Not Resolved]
  - Abnormal behaviour [Unknown]
  - Off label use [Not Recovered/Not Resolved]
  - Weight decreased [Not Recovered/Not Resolved]
  - Cough [Not Recovered/Not Resolved]
  - Deformity [Not Recovered/Not Resolved]
  - Dyskinesia [Not Recovered/Not Resolved]
  - Dysphagia [Not Recovered/Not Resolved]
  - Eye infection [Not Recovered/Not Resolved]
  - Gingival recession [Not Recovered/Not Resolved]
  - Headache [Not Recovered/Not Resolved]
  - Hyperhidrosis [Not Recovered/Not Resolved]
  - Hyperventilation [Not Recovered/Not Resolved]
  - Impaired quality of life [Not Recovered/Not Resolved]
  - Laryngeal dyskinesia [Not Recovered/Not Resolved]

NARRATIVE: CASE EVENT DATE: 20181101
